FAERS Safety Report 10224163 (Version 2)
Quarter: 2014Q2

REPORT INFORMATION
  Report Type: Report from Study
  Country: CA (occurrence: CA)
  Receive Date: 20140609
  Receipt Date: 20140609
  Transmission Date: 20141212
  Serious: Yes (Hospitalization)
  Sender: FDA-Public Use
  Company Number: PHHY2012CA050652

PATIENT
  Age: 72 Year
  Sex: Male

DRUGS (3)
  1. AFINITOR [Suspect]
     Indication: PANCREATIC NEUROENDOCRINE TUMOUR
     Dosage: 10 MG, QD
     Route: 030
     Dates: start: 20120529, end: 20120629
  2. AFINITOR [Suspect]
     Dosage: 5 MG, QD
     Route: 048
     Dates: start: 20120727, end: 20121206
  3. SANDOSTATIN LAR [Suspect]
     Indication: PANCREATIC NEUROENDOCRINE TUMOUR
     Dosage: 30 MG, EVERY 04 WEEKS
     Route: 030
     Dates: start: 20110315

REACTIONS (9)
  - Loss of consciousness [Unknown]
  - Kidney infection [Unknown]
  - Blood pressure decreased [Unknown]
  - Dizziness [Unknown]
  - Vomiting [Unknown]
  - Anxiety [Unknown]
  - Insomnia [Unknown]
  - Stomatitis [Recovered/Resolved]
  - Blood pressure systolic increased [Unknown]
